FAERS Safety Report 25058039 (Version 2)
Quarter: 2025Q1

REPORT INFORMATION
  Report Type: Spontaneous
  Country: US (occurrence: US)
  Receive Date: 20250310
  Receipt Date: 20250331
  Transmission Date: 20250409
  Serious: No
  Sender: LUPIN
  Company Number: US-LUPIN PHARMACEUTICALS INC.-2025-01978

PATIENT

DRUGS (4)
  1. RAMIPRIL [Suspect]
     Active Substance: RAMIPRIL
     Indication: Product used for unknown indication
  2. RAMIPRIL [Suspect]
     Active Substance: RAMIPRIL
  3. RAMIPRIL [Suspect]
     Active Substance: RAMIPRIL
  4. RAMIPRIL [Suspect]
     Active Substance: RAMIPRIL

REACTIONS (2)
  - Recalled product administered [Unknown]
  - No adverse event [Unknown]
